FAERS Safety Report 15507040 (Version 1)
Quarter: 2018Q4

REPORT INFORMATION
  Report Type: Spontaneous
  Country: FR (occurrence: FR)
  Receive Date: 20181016
  Receipt Date: 20181016
  Transmission Date: 20190205
  Serious: Yes (Other)
  Sender: FDA-Public Use
  Company Number: PHHY2018FR047916

PATIENT
  Age: 50 Year
  Sex: Female
  Weight: 63 kg

DRUGS (9)
  1. TACROLIMUS. [Suspect]
     Active Substance: TACROLIMUS
     Indication: RENAL TRANSPLANT
     Dosage: 3 MG, QD
     Route: 065
     Dates: start: 20170704
  2. TACROLIMUS. [Suspect]
     Active Substance: TACROLIMUS
     Dosage: 4 MG, QD
     Route: 065
     Dates: start: 20170805
  3. TACROLIMUS. [Suspect]
     Active Substance: TACROLIMUS
     Dosage: 3.5 MG, QD
     Route: 065
     Dates: start: 20170930
  4. TACROLIMUS. [Suspect]
     Active Substance: TACROLIMUS
     Dosage: 2.5 MG, QD
     Route: 065
     Dates: start: 20180127
  5. TACROLIMUS. [Suspect]
     Active Substance: TACROLIMUS
     Dosage: 2.5 MG, QD
     Route: 065
     Dates: start: 20180414
  6. CELLCEPT [Concomitant]
     Active Substance: MYCOPHENOLATE MOFETIL\MYCOPHENOLATE MOFETIL HYDROCHLORIDE
     Indication: IMMUNOSUPPRESSION
     Dosage: 1 OT, QD (750 (UNIT UNKNOWN), ONCE DAILY)
     Route: 065
     Dates: start: 20170704
  7. CORTANCYL [Concomitant]
     Active Substance: PREDNISONE
     Indication: IMMUNOSUPPRESSION
     Dosage: 1 OT, QD (5 (UNKNOWN UNIT), ONCE DAILY)
     Route: 065
     Dates: start: 20170718
  8. TACROLIMUS. [Suspect]
     Active Substance: TACROLIMUS
     Dosage: 1 DF, QD (3 UNSPECIFIED UNIT, ONCE DAILY)
     Route: 065
     Dates: start: 20180210
  9. TACROLIMUS. [Suspect]
     Active Substance: TACROLIMUS
     Dosage: 3 MG, QD
     Route: 065
     Dates: start: 20171104

REACTIONS (2)
  - Bronchitis [Recovered/Resolved]
  - Diarrhoea [Recovered/Resolved]

NARRATIVE: CASE EVENT DATE: 201712
